FAERS Safety Report 4644633-6 (Version None)
Quarter: 2005Q2

REPORT INFORMATION
  Report Type: 
  Country: None (occurrence: None)
  Receive Date: 20050426
  Receipt Date: 20041220
  Transmission Date: 20051028
  Serious: Yes (Other)
  Sender: FDA-Public Use
  Company Number: PHEH2004US13544

PATIENT
  Age: 89 Year
  Sex: Female

DRUGS (2)
  1. CELEBREX [Suspect]
  2. AREDIA [Suspect]
     Indication: OSTEOPOROSIS
     Dosage: ABOUT 4 TIMES A YEAR
     Route: 042
     Dates: start: 20040301

REACTIONS (12)
  - BLINDNESS UNILATERAL [None]
  - INJECTION SITE PAIN [None]
  - INJECTION SITE REACTION [None]
  - PAIN [None]
  - RASH [None]
  - RASH MACULAR [None]
  - RASH PRURITIC [None]
  - RASH PUSTULAR [None]
  - SKIN BURNING SENSATION [None]
  - SWOLLEN TONGUE [None]
  - VISUAL DISTURBANCE [None]
  - VISUAL FIELD DEFECT [None]
